FAERS Safety Report 8029754-2 (Version None)
Quarter: 2011Q4

REPORT INFORMATION
  Report Type: 
  Country: None (occurrence: None)
  Receive Date: 20111204
  Receipt Date: 20111220
  Transmission Date: 20120403
  Serious: Yes (Other)
  Sender: FDA-Public Use
  Company Number: FK201103089

PATIENT
  Age: 29 Year
  Sex: Male

DRUGS (5)
  1. CARMUSTINE [Concomitant]
  2. TEMOZOLOMIDE (TEMOZOLOMIDE) (TEMOZOLOMIDE) [Concomitant]
  3. METHYLPREDNISOLONE [Concomitant]
  4. IRINOTECAN HCL [Suspect]
     Indication: GLIOBLASTOMA
  5. BEVACIZUMAB (BEVACIZUMAB) (BEVACIZUMAB) [Suspect]
     Indication: GLIOBLASTOMA
     Dosage: 10 MG/KG EVERY 2 WEEKS

REACTIONS (5)
  - GLIOBLASTOMA [None]
  - SKIN STRIAE [None]
  - SKIN NECROSIS [None]
  - NEOPLASM PROGRESSION [None]
  - DRUG INEFFECTIVE [None]
